FAERS Safety Report 9926046 (Version 1)
Quarter: 2014Q1

REPORT INFORMATION
  Report Type: Report from Study
  Country: NL (occurrence: NL)
  Receive Date: 20140226
  Receipt Date: 20140226
  Transmission Date: 20141002
  Serious: Yes (Death)
  Sender: FDA-Public Use
  Company Number: PHHY2014NL023384

PATIENT
  Sex: Male

DRUGS (3)
  1. SANDOSTATIN LAR [Suspect]
     Indication: NEUROENDOCRINE TUMOUR
     Dosage: 30 MG/2 ML, ONCE PER 3 WEEKS
     Route: 030
  2. SANDOSTATIN LAR [Suspect]
     Dosage: 30 MG/2 ML, ONCE PER 3 WEEKS
     Route: 030
     Dates: start: 20140121
  3. SANDOSTATIN LAR [Suspect]
     Dosage: 30 MG/2 ML, ONCE PER 3 WEEKS
     Route: 030
     Dates: start: 20140213

REACTIONS (1)
  - Death [Fatal]
